FAERS Safety Report 13361147 (Version 7)
Quarter: 2017Q3

REPORT INFORMATION
  Report Type: Report from Study
  Country: FR (occurrence: FR)
  Receive Date: 20170322
  Receipt Date: 20170830
  Transmission Date: 20171127
  Serious: Yes (Death, Hospitalization, Other)
  Sender: FDA-Public Use
  Company Number: FR-SEATTLE GENETICS-2017SGN00666

PATIENT
  Age: 72 Year
  Sex: Male
  Weight: 72 kg

DRUGS (2)
  1. BRENTUXIMAB VEDOTIN [Suspect]
     Active Substance: BRENTUXIMAB VEDOTIN
     Indication: HODGKIN^S DISEASE
     Dosage: 1.2 MG/KG, Q21D
     Route: 042
     Dates: start: 20161122, end: 20170208
  2. BENDAMUSTINE HYDROCHLORIDE. [Suspect]
     Active Substance: BENDAMUSTINE HYDROCHLORIDE
     Indication: HODGKIN^S DISEASE
     Dosage: 90 MG/M2, QD
     Route: 042
     Dates: start: 20161123, end: 20170210

REACTIONS (4)
  - Renal failure [Fatal]
  - Cytomegalovirus infection [Fatal]
  - Hodgkin^s disease [Fatal]
  - Epstein-Barr virus associated lymphoma [Fatal]

NARRATIVE: CASE EVENT DATE: 20170303
